FAERS Safety Report 19149384 (Version 1)
Quarter: 2021Q2

REPORT INFORMATION
  Report Type: Spontaneous
  Country: DE (occurrence: DE)
  Receive Date: 20210417
  Receipt Date: 20210417
  Transmission Date: 20210717
  Serious: Yes (Hospitalization)
  Sender: FDA-Public Use
  Company Number: DE-DRREDDYS-GER/GER/21/0134073

PATIENT
  Age: 79 Year
  Sex: Female
  Weight: 80 kg

DRUGS (10)
  1. RAMIPRIL. [Suspect]
     Active Substance: RAMIPRIL
     Indication: PRODUCT USED FOR UNKNOWN INDICATION
     Dosage: 5 MG, 0.5?0?0.5?0, TABLETTEN (5 MG, 0.5?0?0.5?0, TABLETS)
     Route: 048
  2. ALENDRONIC ACID [Concomitant]
     Active Substance: ALENDRONIC ACID
     Indication: PRODUCT USED FOR UNKNOWN INDICATION
     Dosage: 70 MG / WOCHE, FREITAG, TABLETTEN (70 MG / WEEK, FRIDAY, TABLETS)
     Route: 048
  3. ACETYLSALICYLSAEURE [Concomitant]
     Active Substance: ASPIRIN
     Indication: PRODUCT USED FOR UNKNOWN INDICATION
     Dosage: 100 MG, 1?0?0?0
  4. TORASEMID [Suspect]
     Active Substance: TORSEMIDE
     Indication: PRODUCT USED FOR UNKNOWN INDICATION
     Dosage: 10 MG, 1?0.5?0?0, TABLETTEN (10 MG, 1?0.5?0?0, TABLETS)
     Route: 048
  5. METOPROLOL. [Concomitant]
     Active Substance: METOPROLOL
     Indication: PRODUCT USED FOR UNKNOWN INDICATION
     Dosage: 47.5 MG, 0.5?0?0.5?0, RETARD?TABLETTEN (47.5 MG, 0.5?0?0.5?0, SUSTAINED?RELEASE TABLETS)
     Route: 048
  6. CEFUROXIM [Concomitant]
     Active Substance: CEFUROXIME
     Indication: PRODUCT USED FOR UNKNOWN INDICATION
     Dosage: 250 MG, SEIT 19022020, TABLETTEN (250 MG, SINCE 19022020, TABLETS)
     Route: 048
  7. LEVODOPA W/CARBIDOPA [Concomitant]
     Active Substance: CARBIDOPA\LEVODOPA
     Indication: PRODUCT USED FOR UNKNOWN INDICATION
     Dosage: 100|25 MG, 0?0?1?0, TABLETTEN (100 | 25 MG, 0?0?1?0, TABLETS)
     Route: 048
  8. METFORMIN [Concomitant]
     Active Substance: METFORMIN HYDROCHLORIDE
     Indication: PRODUCT USED FOR UNKNOWN INDICATION
     Dosage: 500 MG, 1?0?1?0, TABLETTEN
     Route: 048
  9. ALLOPURINOL. [Suspect]
     Active Substance: ALLOPURINOL
     Indication: PRODUCT USED FOR UNKNOWN INDICATION
     Dosage: 300 MG, 0?0?1?0, TABLETTEN (300 MG, 0?0?1?0, TABLETS)
     Route: 048
  10. COLECALCIFEROL [Concomitant]
     Active Substance: CHOLECALCIFEROL
     Indication: PRODUCT USED FOR UNKNOWN INDICATION
     Dosage: 20.000 IE / WOCHE, FREITAG, TABLETTEN (20,000 IU / WEEK, FRIDAY, TABLETS)
     Route: 048

REACTIONS (3)
  - Condition aggravated [Unknown]
  - General physical health deterioration [Unknown]
  - Hyperglycaemia [Unknown]
